FAERS Safety Report 5279853-3 (Version None)
Quarter: 2007Q1

REPORT INFORMATION
  Report Type: 
  Country: None (occurrence: None)
  Receive Date: 20061218
  Receipt Date: 20060601
  Transmission Date: 20070707
  Serious: No
  Sender: FDA-Public Use
  Company Number: US200606000753

PATIENT
  Age: 59 Year
  Sex: Female

DRUGS (2)
  1. HUMALOG LISPRO (LISPRO LISPRO) PEN, DISPOSABLE [Suspect]
     Dosage: SEE IMAGE
  2. HUMULIN N [Suspect]
     Dosage: SEE IMAGE

REACTIONS (1)
  - WRONG DRUG ADMINISTERED [None]
